FAERS Safety Report 13508759 (Version 1)
Quarter: 2017Q2

REPORT INFORMATION
  Report Type: Spontaneous
  Country: CN (occurrence: CN)
  Receive Date: 20170503
  Receipt Date: 20170503
  Transmission Date: 20170830
  Serious: Yes (Other)
  Sender: FDA-Public Use
  Company Number: CN-UNITED THERAPEUTICS-UNT-2017-005767

PATIENT
  Age: 27 Year
  Sex: Female
  Weight: 44 kg

DRUGS (4)
  1. REMODULIN [Suspect]
     Active Substance: TREPROSTINIL
     Dosage: 0.01 ?G/KG, CONTINUING
     Route: 041
     Dates: start: 20170416, end: 20170416
  2. REMODULIN [Suspect]
     Active Substance: TREPROSTINIL
     Dosage: 0.00525 ?G/KG, CONTINUING
     Route: 041
     Dates: start: 20170415, end: 20170416
  3. REMODULIN [Suspect]
     Active Substance: TREPROSTINIL
     Dosage: 0.0075 ?G/KG,CONTINUING
     Route: 041
     Dates: start: 20170416, end: 20170421
  4. REMODULIN [Suspect]
     Active Substance: TREPROSTINIL
     Indication: PULMONARY ARTERIAL HYPERTENSION
     Dosage: 0.00225 ?G/KG, CONTINUING
     Route: 041
     Dates: start: 20170413, end: 20170415

REACTIONS (5)
  - Maternal exposure during pregnancy [Unknown]
  - Caesarean section [Unknown]
  - Vomiting [Recovering/Resolving]
  - Premature delivery [Unknown]
  - Nausea [Recovering/Resolving]

NARRATIVE: CASE EVENT DATE: 201608
